FAERS Safety Report 14247648 (Version 1)
Quarter: 2017Q4

REPORT INFORMATION
  Report Type: Report from Study
  Country: US (occurrence: US)
  Receive Date: 20171204
  Receipt Date: 20171204
  Transmission Date: 20180321
  Serious: Yes (Hospitalization)
  Sender: FDA-Public Use
  Company Number: US-JNJFOC-20171137817

PATIENT
  Age: 74 Year
  Sex: Male

DRUGS (29)
  1. XANAX [Concomitant]
     Active Substance: ALPRAZOLAM
  2. IPRATROPIUM BROMIDE. [Concomitant]
     Active Substance: IPRATROPIUM BROMIDE
  3. FISH OIL [Concomitant]
     Active Substance: FISH OIL
  4. DULOXETINE HCL [Concomitant]
     Active Substance: DULOXETINE HYDROCHLORIDE
  5. OMEPRAZOLE. [Concomitant]
     Active Substance: OMEPRAZOLE
  6. GLIPIZIDE. [Concomitant]
     Active Substance: GLIPIZIDE
  7. SYMBICORT [Concomitant]
     Active Substance: BUDESONIDE\FORMOTEROL FUMARATE DIHYDRATE
  8. TAMSULOSIN [Concomitant]
     Active Substance: TAMSULOSIN
  9. IMBRUVICA [Suspect]
     Active Substance: IBRUTINIB
     Indication: CHRONIC LYMPHOCYTIC LEUKAEMIA
     Route: 048
     Dates: start: 20171114, end: 20171120
  10. SYNTHROID [Concomitant]
     Active Substance: LEVOTHYROXINE SODIUM
  11. NORCO [Concomitant]
     Active Substance: ACETAMINOPHEN\HYDROCODONE BITARTRATE
  12. ONDANSETRON [Concomitant]
     Active Substance: ONDANSETRON
  13. NOVOLOG [Concomitant]
     Active Substance: INSULIN ASPART
  14. PROCHLORPERAZINE. [Concomitant]
     Active Substance: PROCHLORPERAZINE
  15. METOPROLOL. [Concomitant]
     Active Substance: METOPROLOL
  16. PROAIR HFA [Concomitant]
     Active Substance: ALBUTEROL SULFATE
  17. OXYCODONE [Concomitant]
     Active Substance: OXYCODONE
  18. ANORO ELLIPTA [Concomitant]
     Active Substance: UMECLIDINIUM BROMIDE\VILANTEROL TRIFENATATE
  19. ZYRTEC [Concomitant]
     Active Substance: CETIRIZINE HYDROCHLORIDE
  20. CLOPIDOGREL BISULFATE. [Concomitant]
     Active Substance: CLOPIDOGREL BISULFATE
  21. MULTIVITAMINS [Concomitant]
     Active Substance: VITAMINS
  22. ALBUTEROL. [Concomitant]
     Active Substance: ALBUTEROL
  23. TYLENOL [Concomitant]
     Active Substance: ACETAMINOPHEN
  24. TOCOPHEROL [Concomitant]
     Active Substance: TOCOPHEROL
  25. PRAVASTATIN. [Concomitant]
     Active Substance: PRAVASTATIN
  26. FINASTERIDE. [Concomitant]
     Active Substance: FINASTERIDE
  27. VITAMIN D [Concomitant]
     Active Substance: CHOLECALCIFEROL
  28. ASPIRIN. [Concomitant]
     Active Substance: ASPIRIN
  29. BUPROPION HCL [Concomitant]
     Active Substance: BUPROPION HYDROCHLORIDE

REACTIONS (4)
  - Generalised oedema [Unknown]
  - Fluid retention [Unknown]
  - Heart rate irregular [Unknown]
  - Dyspnoea [Unknown]

NARRATIVE: CASE EVENT DATE: 20171119
